FAERS Safety Report 21696093 (Version 1)
Quarter: 2022Q4

REPORT INFORMATION
  Report Type: Spontaneous
  Country: CN (occurrence: CN)
  Receive Date: 20221207
  Receipt Date: 20221207
  Transmission Date: 20230112
  Serious: Yes (Other)
  Sender: FDA-Public Use
  Company Number: CN-009507513-2212CHN001498

PATIENT
  Age: 85 Year
  Sex: Male
  Weight: 70 kg

DRUGS (4)
  1. CILASTATIN SODIUM\IMIPENEM [Suspect]
     Active Substance: CILASTATIN SODIUM\IMIPENEM
     Indication: Pneumonia
     Dosage: 1 GRAM, Q8H
     Route: 041
     Dates: start: 20221120, end: 20221122
  2. FAMOTIDINE [Concomitant]
     Active Substance: FAMOTIDINE
     Dosage: 20 MILLIGRAM, Q12H (ALSO REPORTED AS QD)
     Route: 041
     Dates: start: 20221120, end: 20221124
  3. SODIUM CHLORIDE [Concomitant]
     Active Substance: SODIUM CHLORIDE
     Dosage: 0.9%, 100 MILLILITER, Q8H
     Route: 041
     Dates: start: 20221120
  4. SODIUM CHLORIDE [Concomitant]
     Active Substance: SODIUM CHLORIDE
     Dosage: 0.9%, 100 MILLILITER, Q12H
     Route: 041
     Dates: start: 20221120

REACTIONS (2)
  - Delirium [Recovered/Resolved]
  - Irritability [Recovered/Resolved]

NARRATIVE: CASE EVENT DATE: 20221122
